FAERS Safety Report 8398004-X (Version None)
Quarter: 2012Q2

REPORT INFORMATION
  Report Type: 
  Country: None (occurrence: None)
  Receive Date: 20120531
  Receipt Date: 20120524
  Transmission Date: 20120825
  Serious: Yes (Disabling, Other)
  Sender: FDA-Public Use
  Company Number: US-JNJFOC-20120519356

PATIENT
  Sex: Male
  Weight: 48.99 kg

DRUGS (3)
  1. LEVAQUIN [Suspect]
     Indication: PNEUMONIA BACTERIAL
     Route: 042
     Dates: start: 20120502, end: 20120501
  2. XANAX [Concomitant]
     Indication: DEPRESSION
     Route: 048
  3. LEVAQUIN [Suspect]
     Route: 048
     Dates: start: 20120501, end: 20120501

REACTIONS (2)
  - DEMENTIA [None]
  - PAIN IN EXTREMITY [None]
